FAERS Safety Report 5507669-9 (Version None)
Quarter: 2007Q4

REPORT INFORMATION
  Report Type: 
  Country: None (occurrence: None)
  Receive Date: 20071106
  Receipt Date: 20071031
  Transmission Date: 20080405
  Serious: Yes (Other)
  Sender: FDA-Public Use
  Company Number: A0682849A

PATIENT
  Age: 22 Year
  Sex: Male

DRUGS (1)
  1. MALARONE [Suspect]
     Indication: MALARIA PROPHYLAXIS
     Route: 048
     Dates: start: 20070823, end: 20070911

REACTIONS (9)
  - ANXIETY [None]
  - DEPRESSION [None]
  - DIARRHOEA [None]
  - DISSOCIATION [None]
  - HALLUCINATION [None]
  - PARANOIA [None]
  - PSYCHOTIC BEHAVIOUR [None]
  - SPEECH DISORDER [None]
  - WEIGHT DECREASED [None]
